FAERS Safety Report 9225132 (Version 1)
Quarter: 2013Q2

REPORT INFORMATION
  Report Type: Spontaneous
  Country: NL (occurrence: NL)
  Receive Date: 20130411
  Receipt Date: 20130422
  Transmission Date: 20140414
  Serious: Yes (Hospitalization)
  Sender: FDA-Public Use
  Company Number: NL-ASTRAZENECA-2013SE22134

PATIENT
  Age: 41 Year
  Sex: Male
  Weight: 109 kg

DRUGS (9)
  1. METOPROLOL SUCCINATE [Suspect]
     Route: 048
  2. SEROQUEL [Suspect]
     Route: 048
     Dates: start: 20111124, end: 20111221
  3. BUSCOPAN (NON AZ PRODUCT) [Suspect]
     Route: 048
     Dates: start: 20091209, end: 20111221
  4. AMLODIPINE (NON AZ PRODUCT) [Suspect]
     Route: 048
     Dates: start: 20111124, end: 20111223
  5. DOMPERIDON (NON AZ PRODUCT) [Suspect]
     Route: 048
     Dates: start: 20091209, end: 20111221
  6. PANTOPRAZOL (NON AZ PRODUCT) [Suspect]
     Route: 048
  7. NORTRILEN (NON AZ PRODUCT) [Suspect]
     Route: 048
  8. PANADOL [Concomitant]
     Route: 048
     Dates: start: 20111124, end: 20111221
  9. OXAZEPAM [Concomitant]
     Route: 048

REACTIONS (10)
  - Bowel movement irregularity [Not Recovered/Not Resolved]
  - Haematochezia [Not Recovered/Not Resolved]
  - Overweight [Not Recovered/Not Resolved]
  - Haemorrhoids [Not Recovered/Not Resolved]
  - Abnormal faeces [Not Recovered/Not Resolved]
  - Eating disorder [Not Recovered/Not Resolved]
  - Abdominal discomfort [Not Recovered/Not Resolved]
  - Constipation [Not Recovered/Not Resolved]
  - Dyspnoea [Not Recovered/Not Resolved]
  - Fatigue [Not Recovered/Not Resolved]
